FAERS Safety Report 6546474-1 (Version None)
Quarter: 2010Q1

REPORT INFORMATION
  Report Type: 
  Country: None (occurrence: None)
  Receive Date: 20100122
  Receipt Date: 20100118
  Transmission Date: 20100710
  Serious: Yes (Death, Hospitalization)
  Sender: FDA-Public Use
  Company Number: PHHY2010CN03144

PATIENT
  Age: 54 Year
  Sex: Male

DRUGS (4)
  1. GLEEVEC [Suspect]
     Indication: CHRONIC MYELOID LEUKAEMIA
     Dosage: 400 MG DAILY
     Route: 048
  2. GLEEVEC [Suspect]
     Dosage: 300 MG DAILY
     Route: 048
  3. HYDROXYUREA [Concomitant]
     Dosage: 3 GRAM DAILY
  4. INTERFERON ALFA [Concomitant]
     Dosage: 500 IU, UNK

REACTIONS (18)
  - BACK PAIN [None]
  - BONE MARROW NECROSIS [None]
  - CHILLS [None]
  - CIRCULATORY COLLAPSE [None]
  - CONJUNCTIVAL HAEMORRHAGE [None]
  - DRUG INEFFECTIVE [None]
  - LUNG DISORDER [None]
  - MUCOSAL HAEMORRHAGE [None]
  - PAIN IN EXTREMITY [None]
  - PETECHIAE [None]
  - PYREXIA [None]
  - RALES [None]
  - RESPIRATORY DISTRESS [None]
  - RESPIRATORY FAILURE [None]
  - RETINAL HAEMORRHAGE [None]
  - SKIN HAEMORRHAGE [None]
  - TACHYCARDIA [None]
  - WHEEZING [None]
